FAERS Safety Report 9511559 (Version 5)
Quarter: 2014Q1

REPORT INFORMATION
  Report Type: Report from Study
  Country: AU (occurrence: AU)
  Receive Date: 20130910
  Receipt Date: 20140121
  Transmission Date: 20141002
  Serious: Yes (Death, Hospitalization, Other)
  Sender: FDA-Public Use
  Company Number: PHHY2013AU055670

PATIENT
  Age: 54 Year
  Sex: Male

DRUGS (16)
  1. CLOZARIL [Suspect]
     Indication: SCHIZOPHRENIA
     Dosage: 250 MG
     Route: 048
     Dates: start: 19951017
  2. CLOZARIL [Suspect]
     Dosage: 600 MG, DAILY
     Route: 048
  3. CLOZARIL [Suspect]
     Dosage: 500 MG, DAILY
  4. CLOZARIL [Suspect]
     Dosage: 400 MG, DAILY
  5. CLOZARIL [Suspect]
     Dosage: UNK
  6. CLOZARIL [Suspect]
     Dosage: UNK
     Dates: end: 20131216
  7. PANADEINE [Concomitant]
     Dosage: UNK (ONE OR TWO CAPLETS EVERY SIX HOURS WHEN REQUIRED)
  8. METFORMIN [Concomitant]
     Indication: DIABETES MELLITUS
     Dosage: 500 MG, UNK (ONE TABLET DAILY WITH FOOD)
  9. METFORMIN [Concomitant]
     Dosage: 1000 UNK, UNK
     Route: 048
     Dates: start: 20120828
  10. RANITIDINE [Concomitant]
     Indication: GASTROOESOPHAGEAL REFLUX DISEASE
     Dosage: 300 MG, UNK (TAKE ONE TABLET WHEN REQUIRED)
     Route: 048
     Dates: start: 20120828
  11. SALBUTAMOL [Concomitant]
     Dosage: 200 UKN (INHALE 2 PUFFS BY MOUTH WHEN REQUIRED AS DIRECTED)
     Route: 055
  12. VENTOLINE [Concomitant]
     Dosage: 200 UNK, UNK (INHALE 2 PUFFS BY MOUTH WHEN REQUIRED AS DIRECTED)
     Route: 055
  13. ASMOL [Concomitant]
     Dosage: 200 UNK, UNK (INHALE 2 PUFFS BY MOUTH WHEN REQUIRED AS DIRECTED)
     Route: 055
  14. MYLANTA P [Concomitant]
     Dosage: UNK (TAKE 10-20 ML BY METRIC MEASURE AFTER FOOD AS DIRECTED)
  15. FENTANYL [Concomitant]
     Indication: PAIN
     Dosage: 125 MG, PER 2 DAYS
     Dates: start: 20130719
  16. OXYCODONE [Concomitant]
     Indication: PAIN
     Dosage: 10 MG, 3 X DAY
     Route: 048

REACTIONS (7)
  - Terminal state [Fatal]
  - Lung neoplasm [Not Recovered/Not Resolved]
  - Chronic obstructive pulmonary disease [Recovered/Resolved]
  - Dyspnoea [Recovered/Resolved]
  - Non-small cell lung cancer metastatic [Unknown]
  - Antipsychotic drug level increased [Recovered/Resolved with Sequelae]
  - Neutropenia [Unknown]
